FAERS Safety Report 15315045 (Version 1)
Quarter: 2018Q3

REPORT INFORMATION
  Report Type: Spontaneous
  Country: GB (occurrence: GB)
  Receive Date: 20180824
  Receipt Date: 20180824
  Transmission Date: 20181010
  Serious: Yes (Hospitalization)
  Sender: FDA-Public Use
  Company Number: GB-BIOGEN-2018BI00623777

PATIENT
  Sex: Male

DRUGS (1)
  1. AVONEX [Suspect]
     Active Substance: INTERFERON BETA-1A
     Indication: MULTIPLE SCLEROSIS
     Route: 030
     Dates: start: 20160401

REACTIONS (7)
  - Vomiting [Unknown]
  - Musculoskeletal disorder [Unknown]
  - Fall [Recovered/Resolved]
  - Head injury [Unknown]
  - Haematemesis [Unknown]
  - Loss of consciousness [Unknown]
  - Dysarthria [Unknown]
